FAERS Safety Report 6880030-0 (Version None)
Quarter: 2010Q3

REPORT INFORMATION
  Report Type: 
  Country: None (occurrence: None)
  Receive Date: 20100728
  Receipt Date: 20100716
  Transmission Date: 20110219
  Serious: Yes (Other)
  Sender: FDA-Public Use
  Company Number: HQWYE072006AUG04

PATIENT
  Sex: Female

DRUGS (3)
  1. PREMARIN [Suspect]
  2. PROVERA [Suspect]
  3. ESTRADERM [Suspect]

REACTIONS (1)
  - BREAST CANCER METASTATIC [None]
